FAERS Safety Report 7591379-0 (Version None)
Quarter: 2011Q3

REPORT INFORMATION
  Report Type: 
  Country: None (occurrence: None)
  Receive Date: 20110706
  Receipt Date: 20100208
  Transmission Date: 20111222
  Serious: No
  Sender: FDA-Public Use
  Company Number: 2010BI004460

PATIENT
  Age: 50 Year
  Sex: Male

DRUGS (1)
  1. TYSABRI [Suspect]
     Indication: MULTIPLE SCLEROSIS
     Route: 042
     Dates: start: 20070115

REACTIONS (9)
  - DRUG INEFFECTIVE [None]
  - MUSCULAR WEAKNESS [None]
  - MOBILITY DECREASED [None]
  - NAUSEA [None]
  - MEMORY IMPAIRMENT [None]
  - WEIGHT DECREASED [None]
  - MUSCLE SPASMS [None]
  - ABDOMINAL DISCOMFORT [None]
  - FALL [None]
